FAERS Safety Report 5407786-8 (Version None)
Quarter: 2007Q3

REPORT INFORMATION
  Report Type: 
  Country: None (occurrence: None)
  Receive Date: 20070807
  Receipt Date: 20070724
  Transmission Date: 20080115
  Serious: Yes (Death)
  Sender: FDA-Public Use
  Company Number: JP-SHR-JP-2007-024301

PATIENT
  Age: 81 Year
  Sex: Male

DRUGS (5)
  1. FAMOTIDINE [Concomitant]
     Dosage: UNK, UNK
     Dates: start: 20060322, end: 20060830
  2. BIOFERMIN [Concomitant]
     Dosage: UNK, UNK
     Dates: start: 20060322, end: 20060830
  3. GLUCONSAN K [Concomitant]
     Dosage: UNK, UNK
     Dates: start: 20060322, end: 20060830
  4. BISOLVON [Concomitant]
     Dosage: UNK, UNK
     Route: 048
     Dates: start: 20060322, end: 20060830
  5. SOTALOL HCL [Suspect]
     Indication: VENTRICULAR TACHYCARDIA
     Route: 048
     Dates: start: 20051227, end: 20060930

REACTIONS (1)
  - PNEUMONIA [None]
